FAERS Safety Report 13711619 (Version 3)
Quarter: 2017Q3

REPORT INFORMATION
  Report Type: Spontaneous
  Country: US (occurrence: US)
  Receive Date: 20170703
  Receipt Date: 20170710
  Transmission Date: 20171127
  Serious: No
  Sender: FDA-Public Use
  Company Number: US-BAYER-2017-127552

PATIENT
  Age: 41 Year
  Sex: Female
  Weight: 78.23 kg

DRUGS (4)
  1. ADEMPAS [Suspect]
     Active Substance: RIOCIGUAT
     Indication: PULMONARY ARTERIAL HYPERTENSION
     Dosage: 1 MG, TID
     Route: 048
     Dates: start: 20170518, end: 20170619
  2. REMODULIN [Suspect]
     Active Substance: TREPROSTINIL
     Indication: PULMONARY HYPERTENSION
     Dosage: 0.008 ?G/KG, UNK
     Route: 058
     Dates: start: 20170502
  3. LETAIRIS [Concomitant]
     Active Substance: AMBRISENTAN
     Dosage: UNK
  4. ADEMPAS [Suspect]
     Active Substance: RIOCIGUAT
     Indication: PULMONARY ARTERIAL HYPERTENSION
     Dosage: 2.25 MG, TID (ONE AND A HALF OF THE 1.5 MG TABLET)
     Route: 048
     Dates: start: 20170620

REACTIONS (8)
  - Diarrhoea [Unknown]
  - Wrong technique in product usage process [None]
  - Headache [None]
  - Vomiting [Recovered/Resolved]
  - Intentional product misuse [None]
  - Infusion site pain [Unknown]
  - Abdominal discomfort [None]
  - Nausea [Not Recovered/Not Resolved]

NARRATIVE: CASE EVENT DATE: 2017
